FAERS Safety Report 26050793 (Version 1)
Quarter: 2025Q4

REPORT INFORMATION
  Report Type: Report from Study
  Country: US (occurrence: US)
  Receive Date: 20251116
  Receipt Date: 20251116
  Transmission Date: 20260117
  Serious: Yes (Hospitalization, Other)
  Sender: ABBVIE
  Company Number: US-ABBVIE-6534043

PATIENT
  Age: 75 Year
  Sex: Female

DRUGS (1)
  1. CREON [Suspect]
     Active Substance: PANCRELIPASE AMYLASE\PANCRELIPASE LIPASE\PANCRELIPASE PROTEASE
     Indication: Product used for unknown indication
     Dosage: START DATE TEXT: OVER 2023 TO 2024 YEARS AGO
     Route: 048

REACTIONS (9)
  - Hospitalisation [Recovered/Resolved]
  - Constipation [Unknown]
  - Diarrhoea [Unknown]
  - Dehydration [Unknown]
  - Renal disorder [Unknown]
  - Gastrointestinal sounds abnormal [Unknown]
  - Hepatic mass [Unknown]
  - Malaise [Unknown]
  - Loss of consciousness [Unknown]

NARRATIVE: CASE EVENT DATE: 20250101
